FAERS Safety Report 15077326 (Version 1)
Quarter: 2018Q2

REPORT INFORMATION
  Report Type: Spontaneous
  Country: US (occurrence: US)
  Receive Date: 20180627
  Receipt Date: 20180627
  Transmission Date: 20180711
  Serious: No
  Sender: FDA-Public Use
  Company Number: US-GLAXOSMITHKLINE-US2018114198

PATIENT
  Age: 74 Year
  Sex: Female

DRUGS (7)
  1. BREO ELLIPTA [Suspect]
     Active Substance: FLUTICASONE FUROATE\VILANTEROL TRIFENATATE
     Indication: ASTHMA
     Dosage: 200 MCG/MG, UNK
     Dates: start: 201806
  2. FLUTICASONE NASAL [Concomitant]
     Active Substance: FLUTICASONE
  3. NORVASC [Concomitant]
     Active Substance: AMLODIPINE BESYLATE
  4. ACYCLOVIR. [Concomitant]
     Active Substance: ACYCLOVIR
  5. PREMARIN [Concomitant]
     Active Substance: ESTROGENS, CONJUGATED
  6. CRESTOR [Concomitant]
     Active Substance: ROSUVASTATIN CALCIUM
  7. LEVOCETIRIZINE [Concomitant]
     Active Substance: LEVOCETIRIZINE

REACTIONS (3)
  - Drug ineffective [Unknown]
  - Oropharyngeal pain [Not Recovered/Not Resolved]
  - Musculoskeletal discomfort [Not Recovered/Not Resolved]

NARRATIVE: CASE EVENT DATE: 201806
